FAERS Safety Report 6680799-4 (Version None)
Quarter: 2010Q2

REPORT INFORMATION
  Report Type: 
  Country: None (occurrence: None)
  Receive Date: 20100414
  Receipt Date: 20100406
  Transmission Date: 20101027
  Serious: Yes (Death)
  Sender: FDA-Public Use
  Company Number: PHHY2010JP22679

PATIENT
  Sex: Female

DRUGS (8)
  1. ZOLEDRONATE T29581+ [Suspect]
     Indication: METASTASES TO BONE
     Dosage: 4MG (EVERY FOUR WEEKS)
     Route: 042
     Dates: start: 20080212, end: 20080523
  2. RINDERON [Concomitant]
     Dosage: UNK
     Route: 042
     Dates: start: 20080620, end: 20080623
  3. ZYPREXA [Concomitant]
     Dosage: 5 MG, UNK
     Route: 048
     Dates: start: 20080515, end: 20080523
  4. TRAVELMIN [Concomitant]
     Dosage: UNK
     Route: 048
     Dates: start: 20080515, end: 20080523
  5. CHLOR-TRIMETON [Concomitant]
     Dosage: UNK
     Route: 042
     Dates: start: 20080620, end: 20080623
  6. VOLTAREN [Concomitant]
     Dosage: UNK
     Route: 054
     Dates: start: 20080521, end: 20080523
  7. LEPETAN [Concomitant]
     Dosage: UNK
     Route: 054
     Dates: start: 20080515, end: 20080523
  8. MS ONSHIPPU [Concomitant]
     Dosage: UNK
     Dates: start: 20080520, end: 20080523

REACTIONS (4)
  - MALIGNANT NEOPLASM PROGRESSION [None]
  - PLEURAL EFFUSION [None]
  - RESPIRATORY FAILURE [None]
  - TOOTH EXTRACTION [None]
